FAERS Safety Report 7426948-1 (Version None)
Quarter: 2011Q2

REPORT INFORMATION
  Report Type: 
  Country: None (occurrence: None)
  Receive Date: 20110420
  Receipt Date: 20110418
  Transmission Date: 20111010
  Serious: Yes (Other)
  Sender: FDA-Public Use
  Company Number: DE-PFIZER INC-2011084283

PATIENT
  Age: 74 Year
  Sex: Female

DRUGS (3)
  1. CLOPIDOGREL [Concomitant]
  2. SORTIS [Suspect]
     Indication: BLOOD CHOLESTEROL INCREASED
     Dosage: 20 MG, UNK
  3. SORTIS [Suspect]
     Dosage: 10 MG, UNK

REACTIONS (4)
  - CEREBELLAR HAEMORRHAGE [None]
  - STENT PLACEMENT [None]
  - MYALGIA [None]
  - DRUG PRESCRIBING ERROR [None]
